FAERS Safety Report 24669394 (Version 1)
Quarter: 2024Q4

REPORT INFORMATION
  Report Type: Spontaneous
  Country: IQ (occurrence: IQ)
  Receive Date: 20241127
  Receipt Date: 20241127
  Transmission Date: 20250115
  Serious: Yes (Hospitalization, Other)
  Sender: RANBAXY
  Company Number: IQ-SUN PHARMACEUTICAL INDUSTRIES LTD-2024R1-479727

PATIENT
  Age: 33 Year
  Sex: Male

DRUGS (2)
  1. PREDNISOLONE [Suspect]
     Active Substance: PREDNISOLONE
     Indication: Takayasu^s arteritis
     Dosage: 60 MILLIGRAM, DAILY
     Route: 048
  2. METHOTREXATE [Suspect]
     Active Substance: METHOTREXATE
     Indication: Takayasu^s arteritis
     Dosage: 15 MILLIGRAM, WEEKLY
     Route: 065

REACTIONS (3)
  - Therapeutic response decreased [Unknown]
  - Erectile dysfunction [Unknown]
  - Acne [Unknown]
